FAERS Safety Report 10055850 (Version 20)
Quarter: 2014Q4

REPORT INFORMATION
  Report Type: Report from Study
  Country: US (occurrence: US)
  Receive Date: 20140403
  Receipt Date: 20141120
  Transmission Date: 20150528
  Serious: Yes (Hospitalization, Other)
  Sender: FDA-Public Use
  Company Number: US-ALEXION-A201400560

PATIENT

DRUGS (6)
  1. PROGRAF [Concomitant]
     Active Substance: TACROLIMUS\TACROLIMUS ANHYDROUS
     Indication: IMMUNOSUPPRESSANT DRUG THERAPY
     Dosage: UNK UNK, QD
     Route: 065
     Dates: start: 20111017
  2. AMLODIPINE [Concomitant]
     Active Substance: AMLODIPINE BESYLATE
     Indication: HYPERTENSION
     Dosage: UNK UNK, QD
     Route: 065
     Dates: start: 20111110
  3. COREG [Concomitant]
     Active Substance: CARVEDILOL
     Indication: HYPERTENSION
     Dosage: UNK UNK, QD
     Route: 065
     Dates: start: 20111110
  4. SOLIRIS [Suspect]
     Active Substance: ECULIZUMAB
     Indication: HAEMOLYTIC URAEMIC SYNDROME
     Dosage: 1200 MG, Q2W
     Route: 042
     Dates: start: 20111107
  5. CLONIDINE. [Concomitant]
     Active Substance: CLONIDINE
     Indication: HYPERTENSION
     Dosage: UNK UNK, QD
     Route: 065
     Dates: start: 20111110
  6. ANTIBIOTICS [Concomitant]
     Active Substance: UNSPECIFIED INGREDIENT
     Indication: PYREXIA
     Route: 042

REACTIONS (49)
  - Coma [Unknown]
  - Vomiting [Not Recovered/Not Resolved]
  - Chest pain [Not Recovered/Not Resolved]
  - Hypertension [Not Recovered/Not Resolved]
  - Seizure [Unknown]
  - Pyrexia [Recovered/Resolved]
  - Blood potassium decreased [Not Recovered/Not Resolved]
  - Hypoaesthesia [Not Recovered/Not Resolved]
  - Fluid overload [Unknown]
  - Peripheral swelling [Unknown]
  - Sepsis [Not Recovered/Not Resolved]
  - Hypotension [Recovered/Resolved]
  - Pain [Unknown]
  - Pruritus [Unknown]
  - Balance disorder [Unknown]
  - Lethargy [Unknown]
  - Amnesia [Unknown]
  - Renal failure [Not Recovered/Not Resolved]
  - Cardiac arrest [Unknown]
  - Haemodialysis [Not Recovered/Not Resolved]
  - Blood creatinine increased [Unknown]
  - Dyspnoea [Unknown]
  - Cardiac arrest [Not Recovered/Not Resolved]
  - Thrombotic microangiopathy [Not Recovered/Not Resolved]
  - Fall [Unknown]
  - Anuria [Not Recovered/Not Resolved]
  - Nausea [Not Recovered/Not Resolved]
  - Seizure [Unknown]
  - Renal impairment [Not Recovered/Not Resolved]
  - Hospitalisation [Not Recovered/Not Resolved]
  - Tachycardia [Unknown]
  - Pyrexia [Unknown]
  - Incorrect dose administered [Unknown]
  - Rash [Recovered/Resolved]
  - Fracture [Not Recovered/Not Resolved]
  - Urinary tract infection [Not Recovered/Not Resolved]
  - Speech disorder [Not Recovered/Not Resolved]
  - Pneumonia [Not Recovered/Not Resolved]
  - Ventricular tachycardia [Unknown]
  - Infection [Unknown]
  - Haematochezia [Unknown]
  - White blood cell count increased [Unknown]
  - Kidney infection [Not Recovered/Not Resolved]
  - Hospitalisation [Recovered/Resolved]
  - Blood potassium increased [Unknown]
  - Contusion [Unknown]
  - Road traffic accident [Not Recovered/Not Resolved]
  - Psoriasis [Unknown]
  - Pyrexia [Unknown]

NARRATIVE: CASE EVENT DATE: 20140212
